FAERS Safety Report 8295580-2 (Version None)
Quarter: 2012Q2

REPORT INFORMATION
  Report Type: 
  Country: None (occurrence: None)
  Receive Date: 20120413
  Receipt Date: 20120329
  Transmission Date: 20120825
  Serious: Yes (Other)
  Sender: FDA-Public Use
  Company Number: 2010US004407

PATIENT
  Sex: Female
  Weight: 0.8 kg

DRUGS (6)
  1. BETAMETHASONE [Concomitant]
  2. CLOTRIMAZOL (CLOTRIMAZOLE) [Concomitant]
  3. MAGNESIUM (ALUMINIUM HYDROXIDE) [Concomitant]
  4. CASPOFUNGIN ACETATE [Suspect]
     Indication: CANDIDIASIS
     Dosage: 2 MG/KG, UID/QD
     Dates: start: 20080101, end: 20080101
  5. AMBISOME [Suspect]
     Indication: CANDIDA SEPSIS
     Dosage: 7 MG/KG, UID/QD
     Dates: start: 20080101, end: 20080101
  6. NYSTATIN [Concomitant]

REACTIONS (5)
  - ULTRASOUND SCAN ABNORMAL [None]
  - DRUG RESISTANCE [None]
  - DEAFNESS BILATERAL [None]
  - DRUG INEFFECTIVE [None]
  - DRUG INEFFECTIVE FOR UNAPPROVED INDICATION [None]
